FAERS Safety Report 9107697 (Version 1)
Quarter: 2013Q1

REPORT INFORMATION
  Report Type: Report from Study
  Country: DE (occurrence: DE)
  Receive Date: 20130221
  Receipt Date: 20130221
  Transmission Date: 20140127
  Serious: Yes (Hospitalization)
  Sender: FDA-Public Use
  Company Number: DE-TEVA-385348GER

PATIENT
  Sex: Male

DRUGS (8)
  1. DOXORUBICIN [Suspect]
     Indication: B-CELL LYMPHOMA
     Route: 042
     Dates: start: 20121126
  2. VINCRISTINE [Suspect]
     Indication: B-CELL LYMPHOMA
     Route: 042
     Dates: start: 20121127
  3. PREDNISONE [Suspect]
     Dosage: 37X100 MG
     Dates: start: 20121115
  4. RITUXIMAB [Suspect]
     Indication: B-CELL LYMPHOMA
     Route: 042
     Dates: start: 20121120
  5. CYCLOPHOSPHAMIDE [Suspect]
     Indication: B-CELL LYMPHOMA
     Route: 042
     Dates: start: 20121126
  6. CYCLOPHOSPHAMIDE [Suspect]
     Dosage: 1550 MILLIGRAM DAILY;
     Route: 042
     Dates: start: 20121228, end: 20121228
  7. PEGFILGRASTIM [Suspect]
     Route: 058
     Dates: start: 20121129
  8. PEGFILGRASTIM [Suspect]
     Dosage: 6 MILLIGRAM DAILY;
     Route: 058
     Dates: start: 20121031, end: 20121031

REACTIONS (1)
  - Dysuria [Not Recovered/Not Resolved]
